FAERS Safety Report 9496629 (Version 2)
Quarter: 2013Q4

REPORT INFORMATION
  Report Type: Spontaneous
  Country: JP (occurrence: JP)
  Receive Date: 20130904
  Receipt Date: 20131016
  Transmission Date: 20140711
  Serious: Yes (Other)
  Sender: FDA-Public Use
  Company Number: JP-ASTELLAS-2013JP008960

PATIENT
  Sex: Male

DRUGS (3)
  1. PROGRAF [Suspect]
     Indication: MYASTHENIA GRAVIS
     Dosage: 3 MG, UID/QD
     Route: 048
     Dates: start: 2004, end: 2005
  2. ASPIRIN [Suspect]
     Indication: CEREBRAL INFARCTION
     Dosage: 81 MG, UID/QD
     Route: 048
     Dates: start: 2004, end: 200507
  3. MESTINON [Concomitant]
     Indication: MYASTHENIA GRAVIS
     Dosage: 60 MG, TID
     Route: 048
     Dates: start: 2004, end: 2005

REACTIONS (2)
  - Nephritis [Recovered/Resolved with Sequelae]
  - Antineutrophil cytoplasmic antibody positive [Recovered/Resolved with Sequelae]
